FAERS Safety Report 5052065-4 (Version None)
Quarter: 2006Q3

REPORT INFORMATION
  Report Type: 
  Country: None (occurrence: None)
  Receive Date: 20060711
  Receipt Date: 20060704
  Transmission Date: 20061208
  Serious: Yes (Hospitalization)
  Sender: FDA-Public Use
  Company Number: E2090-00040-SPO-JP

PATIENT
  Age: 76 Year
  Sex: Male

DRUGS (5)
  1. ZONISAMIDE [Suspect]
     Indication: EPILEPSY
     Dosage: 200 MG, ORAL
     Route: 048
  2. DEPAKENE [Suspect]
     Dosage: 400 MG, ORAL
     Route: 048
  3. TICLOPIDINE HCL [Suspect]
     Dosage: 200 MG, ORAL
     Route: 048
  4. CLONAZEPAM [Suspect]
     Dosage: 0.5 MG, ORAL
     Route: 048
  5. PRAVASTATIN [Suspect]
     Dosage: 5 MG, ORAL
     Route: 048

REACTIONS (2)
  - ERYTHEMA [None]
  - RASH PUSTULAR [None]
